FAERS Safety Report 5806098-8 (Version None)
Quarter: 2008Q3

REPORT INFORMATION
  Report Type: 
  Country: None (occurrence: None)
  Receive Date: 20080710
  Receipt Date: 20080702
  Transmission Date: 20090109
  Serious: Yes (Other)
  Sender: FDA-Public Use
  Company Number: JP-BAYER-200811475BYL

PATIENT
  Age: 64 Year
  Sex: Female

DRUGS (4)
  1. FLUDARA INJ [Suspect]
     Indication: B-CELL LYMPHOMA
     Route: 042
     Dates: start: 20070701
  2. FLUDARA [Suspect]
     Indication: B-CELL LYMPHOMA
     Route: 048
     Dates: start: 20070701
  3. NOVANTRONE [Concomitant]
     Indication: B-CELL LYMPHOMA
     Route: 065
  4. DEXAMETHASONE [Concomitant]
     Indication: B-CELL LYMPHOMA
     Route: 065

REACTIONS (2)
  - FEBRILE NEUTROPENIA [None]
  - NEUTROPHIL COUNT DECREASED [None]
